FAERS Safety Report 9629858 (Version 2)
Quarter: 2013Q4

REPORT INFORMATION
  Report Type: Spontaneous
  Country: GB (occurrence: GB)
  Receive Date: 20131017
  Receipt Date: 20131018
  Transmission Date: 20140711
  Serious: Yes (Other)
  Sender: FDA-Public Use
  Company Number: GB-BRISTOL-MYERS SQUIBB COMPANY-19548924

PATIENT
  Age: 3 Decade
  Sex: Male

DRUGS (2)
  1. ABILIFY TABS 5 MG [Suspect]
     Indication: LACTATION DISORDER
     Route: 048
  2. ABILIFY TABS 5 MG [Suspect]
     Indication: SCHIZOPHRENIA
     Route: 048

REACTIONS (2)
  - Psychotic disorder [Recovered/Resolved]
  - Off label use [Unknown]
